FAERS Safety Report 6117011-0 (Version None)
Quarter: 2009Q1

REPORT INFORMATION
  Report Type: 
  Country: None (occurrence: None)
  Receive Date: 20090314
  Receipt Date: 20090105
  Transmission Date: 20090719
  Serious: No
  Sender: FDA-Public Use
  Company Number: US-ABBOTT-09P-163-0495953-00

PATIENT
  Sex: Female
  Weight: 63.56 kg

DRUGS (4)
  1. HUMIRA [Suspect]
     Indication: PSORIASIS
     Dosage: LOADING DOSE: 2 INJECTIONS AND 1- 8 DAYS LATER
     Route: 058
     Dates: start: 20090101
  2. ALLERGY INJECTION [Concomitant]
     Indication: HYPERSENSITIVITY
     Route: 058
     Dates: start: 20060101
  3. ALLEGRA [Concomitant]
     Indication: HYPERSENSITIVITY
     Route: 048
  4. EFFEXOR [Concomitant]
     Indication: HOT FLUSH
     Route: 048
     Dates: start: 20020101

REACTIONS (2)
  - INCORRECT DOSE ADMINISTERED [None]
  - WRONG TECHNIQUE IN DRUG USAGE PROCESS [None]
